FAERS Safety Report 6121602-0 (Version None)
Quarter: 2009Q1

REPORT INFORMATION
  Report Type: 
  Country: None (occurrence: None)
  Receive Date: 20090317
  Receipt Date: 20090306
  Transmission Date: 20090719
  Serious: Yes (Hospitalization)
  Sender: FDA-Public Use
  Company Number: PHHY2009CA08463

PATIENT
  Sex: Female

DRUGS (2)
  1. SANDOSTATIN LAR [Suspect]
     Indication: CARCINOID TUMOUR
     Dosage: 60 MG, QMO
     Route: 030
     Dates: start: 20070226
  2. SANDOSTATIN LAR [Suspect]
     Dosage: 90 MG, QMO

REACTIONS (3)
  - ASTHENIA [None]
  - HEART VALVE REPLACEMENT [None]
  - NEOPLASM PROGRESSION [None]
